FAERS Safety Report 14490498 (Version 2)
Quarter: 2018Q1

REPORT INFORMATION
  Report Type: Spontaneous
  Country: US (occurrence: US)
  Receive Date: 20180206
  Receipt Date: 20180321
  Transmission Date: 20180509
  Serious: Yes (Hospitalization, Other)
  Sender: FDA-Public Use
  Company Number: US-TAKEDA-2018TUS002627

PATIENT
  Sex: Female
  Weight: 66.21 kg

DRUGS (1)
  1. ENTYVIO [Suspect]
     Active Substance: VEDOLIZUMAB
     Indication: COLITIS ULCERATIVE
     Dosage: 300 MG, UNK
     Route: 042
     Dates: start: 201712, end: 201802

REACTIONS (3)
  - Coccidioidomycosis [Recovering/Resolving]
  - Deep vein thrombosis [Recovering/Resolving]
  - Colitis ulcerative [Unknown]
